FAERS Safety Report 16305251 (Version 2)
Quarter: 2019Q4

REPORT INFORMATION
  Report Type: Spontaneous
  Country: ES (occurrence: ES)
  Receive Date: 20190513
  Receipt Date: 20191107
  Transmission Date: 20200122
  Serious: Yes (Death, Hospitalization)
  Sender: FDA-Public Use
  Company Number: ES-MYLANLABS-2019M1044159

PATIENT
  Age: 41 Year
  Sex: Female
  Weight: 57 kg

DRUGS (7)
  1. IVEMEND [Concomitant]
     Active Substance: FOSAPREPITANT DIMEGLUMINE
     Dosage: UNK
     Route: 065
     Dates: start: 20180223, end: 20180223
  2. FORTECORTIN                        /00016001/ [Concomitant]
     Active Substance: DEXAMETHASONE
     Dosage: UNK
     Route: 048
     Dates: start: 20180224, end: 20180227
  3. DEXAMETHASONE. [Concomitant]
     Active Substance: DEXAMETHASONE
     Dosage: 12 MG DIA
     Route: 065
     Dates: start: 20180223, end: 20180223
  4. TRASTUZUMAB. [Suspect]
     Active Substance: TRASTUZUMAB
     Indication: PRODUCT USED FOR UNKNOWN INDICATION
     Dosage: 455 MILLIGRAM, TOTAL
     Route: 042
     Dates: start: 20180223, end: 20180223
  5. DOCETAXEL. [Interacting]
     Active Substance: DOCETAXEL
     Indication: BREAST CANCER
     Dosage: 125 MILLIGRAM, TOTAL
     Route: 042
     Dates: start: 20180223, end: 20180223
  6. FORTECORTIN                        /00016001/ [Concomitant]
     Active Substance: DEXAMETHASONE
     Dosage: 8 MILLIGRAM, QD
     Route: 048
     Dates: start: 20180222, end: 20180225
  7. CARBOPLATINO [Interacting]
     Active Substance: CARBOPLATIN
     Indication: BREAST CANCER
     Dosage: 590 MILLIGRAM, TOTAL
     Route: 042
     Dates: start: 20180223, end: 20180223

REACTIONS (4)
  - Agranulocytosis [Fatal]
  - Drug interaction [Unknown]
  - Colitis [Fatal]
  - Large intestine perforation [Fatal]

NARRATIVE: CASE EVENT DATE: 20180302
